FAERS Safety Report 21739067 (Version 1)
Quarter: 2022Q4

REPORT INFORMATION
  Report Type: Spontaneous
  Country: GB (occurrence: None)
  Receive Date: 20221216
  Receipt Date: 20221216
  Transmission Date: 20230112
  Serious: Yes (Other)
  Sender: FDA-Public Use
  Company Number: GB-MHRA-MED-202212062034049060-WDLNR

PATIENT
  Age: 60 Year
  Sex: Female
  Weight: 73 kg

DRUGS (1)
  1. ATORVASTATIN [Suspect]
     Active Substance: ATORVASTATIN
     Indication: Adverse drug reaction
     Dosage: 50 MG ONCE A DAY AT NIGHT; ;
     Dates: start: 20210301, end: 20221130

REACTIONS (2)
  - Bone pain [Not Recovered/Not Resolved]
  - Bone disorder [Not Recovered/Not Resolved]

NARRATIVE: CASE EVENT DATE: 20210304
